FAERS Safety Report 5846806-3 (Version None)
Quarter: 2008Q3

REPORT INFORMATION
  Report Type: 
  Country: None (occurrence: None)
  Receive Date: 20080815
  Receipt Date: 20080808
  Transmission Date: 20090109
  Serious: Yes (Death, Hospitalization)
  Sender: FDA-Public Use
  Company Number: US-BRISTOL-MYERS SQUIBB COMPANY-14264964

PATIENT
  Age: 71 Year
  Sex: Male

DRUGS (14)
  1. DASATINIB [Suspect]
     Indication: PROSTATE CANCER METASTATIC
     Dosage: INTERRUPTED ON 14JUL08
     Route: 048
     Dates: start: 20080311
  2. ALENDRONATE SODIUM [Concomitant]
  3. ALLOPURINOL [Concomitant]
  4. CALCIUM + VITAMIN D [Concomitant]
     Dosage: CALCIUM 250 MG AND VITAMIN D 125 UNITS; 4 WEEKLY
  5. CASODEX [Concomitant]
  6. ETODOLAC [Concomitant]
     Dosage: AS NEEDED FOR SLEEP
  7. METHOTREXATE [Concomitant]
     Indication: MYASTHENIA GRAVIS
  8. OMEPRAZOLE [Concomitant]
  9. LEUPROLIDE ACETATE [Concomitant]
     Indication: PROSTATE CANCER
  10. LYRICA [Concomitant]
  11. VITAMIN CAP [Concomitant]
     Indication: PAIN
     Dosage: AT BEDTIME
     Route: 048
  12. MELATONIN [Concomitant]
  13. TYLENOL [Concomitant]
  14. DIAZEPAM [Concomitant]
     Indication: SLEEP DISORDER

REACTIONS (3)
  - DEATH [None]
  - HAEMATURIA [None]
  - RENAL FAILURE ACUTE [None]
